FAERS Safety Report 17887757 (Version 1)
Quarter: 2020Q2

REPORT INFORMATION
  Report Type: Spontaneous
  Country: FR (occurrence: FR)
  Receive Date: 20200611
  Receipt Date: 20200611
  Transmission Date: 20200714
  Serious: Yes (Other)
  Sender: FDA-Public Use
  Company Number: FR-TEVA-2020-FR-1246001

PATIENT
  Age: 56 Year
  Sex: Female

DRUGS (13)
  1. CISPLATINE [Suspect]
     Active Substance: CISPLATIN
     Indication: LUNG ADENOCARCINOMA
     Dosage: UNKNOWN
     Route: 042
     Dates: start: 20170913, end: 20171122
  2. ALIMTA [Suspect]
     Active Substance: PEMETREXED DISODIUM
     Dosage: UNKNOWN
     Route: 042
     Dates: start: 20171211, end: 20180418
  3. ESOMEPRAZOLE. [Concomitant]
     Active Substance: ESOMEPRAZOLE MAGNESIUM
  4. GEMZAR [Suspect]
     Active Substance: GEMCITABINE HYDROCHLORIDE
     Indication: LUNG ADENOCARCINOMA
     Dosage: 4200 MG
     Route: 042
     Dates: start: 20181221, end: 20200520
  5. LATANOPROST. [Concomitant]
     Active Substance: LATANOPROST
  6. LEVOTHYROX [Concomitant]
     Active Substance: LEVOTHYROXINE
  7. ALIMTA [Suspect]
     Active Substance: PEMETREXED DISODIUM
     Indication: LUNG ADENOCARCINOMA
     Dosage: UNKNOWN
     Route: 042
     Dates: start: 20170913, end: 20171122
  8. NICARDIPINE (CHLORHYDRATE DE) [Concomitant]
     Active Substance: NICARDIPINE HYDROCHLORIDE
  9. PRIMPERAN [Concomitant]
     Active Substance: METOCLOPRAMIDE HYDROCHLORIDE
     Dosage: IF NECESSARY
  10. ONDANSETRON [Concomitant]
     Active Substance: ONDANSETRON
     Dosage: IF NECESSARY
  11. KEYTRUDA [Suspect]
     Active Substance: PEMBROLIZUMAB
     Indication: LUNG ADENOCARCINOMA
     Dosage: UNKNOWN
     Route: 042
     Dates: start: 20180611, end: 20181126
  12. DOLIPRANE [Concomitant]
     Active Substance: ACETAMINOPHEN
     Dosage: IF NECESSARY
     Route: 065
  13. SULFARLEM [Concomitant]
     Active Substance: ANETHOLTRITHION

REACTIONS (2)
  - Muscular weakness [Not Recovered/Not Resolved]
  - Pain in extremity [Not Recovered/Not Resolved]

NARRATIVE: CASE EVENT DATE: 20190131
